FAERS Safety Report 6634571-1 (Version None)
Quarter: 2010Q1

REPORT INFORMATION
  Report Type: 
  Country: None (occurrence: None)
  Receive Date: 20100225
  Receipt Date: 20090205
  Transmission Date: 20100710
  Serious: Yes (Other)
  Sender: FDA-Public Use
  Company Number: 595732

PATIENT
  Age: 22 Year
  Sex: Female
  Weight: 73.5 kg

DRUGS (4)
  1. ACCUTANE [Suspect]
     Indication: ACNE
     Dosage: 20 MG 2 PER DAY ORAL
     Route: 048
     Dates: start: 19971119, end: 19990901
  2. ORTHO CYCLEN-21 [Concomitant]
  3. DIFFERIN GEL (ADAPALENE) [Concomitant]
  4. CLEOCIN T (CLINDAMYCIN) [Concomitant]

REACTIONS (17)
  - ABDOMINAL PAIN [None]
  - BLOOD TRIGLYCERIDES INCREASED [None]
  - COLITIS ULCERATIVE [None]
  - DERMAL CYST [None]
  - DRY EYE [None]
  - DRY SKIN [None]
  - DYSPNOEA [None]
  - EPISTAXIS [None]
  - EYE IRRITATION [None]
  - FEELING ABNORMAL [None]
  - HEADACHE [None]
  - INFLAMMATORY BOWEL DISEASE [None]
  - LIP DRY [None]
  - MYALGIA [None]
  - NASAL DRYNESS [None]
  - PANIC ATTACK [None]
  - TACHYCARDIA [None]
